FAERS Safety Report 20144298 (Version 1)
Quarter: 2021Q4

REPORT INFORMATION
  Report Type: Other
  Country: SK (occurrence: None)
  Receive Date: 20211203
  Receipt Date: 20211203
  Transmission Date: 20220303
  Serious: Yes (Other)
  Sender: FDA-Public Use
  Company Number: SK-ROCHE-2965704

PATIENT
  Age: 75 Year
  Sex: Female

DRUGS (10)
  1. BEVACIZUMAB [Suspect]
     Active Substance: BEVACIZUMAB
     Indication: Breast cancer
     Route: 065
  2. PACLITAXEL [Suspect]
     Active Substance: PACLITAXEL
     Indication: Breast cancer
     Route: 065
  3. LETROZOLE [Suspect]
     Active Substance: LETROZOLE
     Indication: Breast cancer
     Route: 065
  4. CARBOPLATIN [Concomitant]
     Active Substance: CARBOPLATIN
  5. GEMCITABINE [Concomitant]
     Active Substance: GEMCITABINE
  6. DOCETAXEL [Concomitant]
     Active Substance: DOCETAXEL
  7. DOXORUBICIN [Concomitant]
     Active Substance: DOXORUBICIN
  8. CYCLOPHOSPHAMIDE [Concomitant]
     Active Substance: CYCLOPHOSPHAMIDE
  9. FULVESTRANT [Concomitant]
     Active Substance: FULVESTRANT
  10. DENOSUMAB [Concomitant]
     Active Substance: DENOSUMAB

REACTIONS (5)
  - Metastases to lung [Unknown]
  - Lymphadenopathy [Unknown]
  - Bone disorder [Unknown]
  - Disease progression [Unknown]
  - Drug ineffective [Unknown]
